FAERS Safety Report 5136543-5 (Version None)
Quarter: 2006Q4

REPORT INFORMATION
  Report Type: 
  Country: None (occurrence: None)
  Receive Date: 20061027
  Receipt Date: 20050317
  Transmission Date: 20070319
  Serious: Yes (Hospitalization)
  Sender: FDA-Public Use
  Company Number: NL-BOEHRINGER INGELHEIM PHARMACEUTICALS, INC.-2005-NL-00053NL

PATIENT
  Sex: Female

DRUGS (5)
  1. MICARDIS [Suspect]
     Indication: HYPERTENSION
     Route: 048
  2. HYDROCHLOROTHIAZIDE [Concomitant]
     Dosage: UNKNOWN
     Route: 048
  3. ASCAL CARDIO [Concomitant]
     Route: 048
  4. SELOKEEN [Concomitant]
     Route: 048
  5. CINNARIZINE [Concomitant]
     Route: 048

REACTIONS (1)
  - ANGINA UNSTABLE [None]
